FAERS Safety Report 8807881 (Version 2)
Quarter: 2012Q4

REPORT INFORMATION
  Report Type: Report from Study
  Country: GB (occurrence: GB)
  Receive Date: 20120925
  Receipt Date: 20121128
  Transmission Date: 20130627
  Serious: Yes (Hospitalization)
  Sender: FDA-Public Use
  Company Number: GB-ROCHE-1129551

PATIENT
  Age: 68 None
  Sex: Female

DRUGS (8)
  1. BEVACIZUMAB [Suspect]
     Indication: GASTRIC CANCER
     Dosage: last dose prior to sae 31/Jul/2012
     Route: 042
     Dates: start: 20120620
  2. CAPECITABINE [Suspect]
     Indication: GASTRIC CANCER
     Dosage: last dose prior to sae: 14/Aug/2012
     Route: 048
     Dates: start: 20120620
  3. CISPLATIN [Suspect]
     Indication: GASTRIC CANCER
     Dosage: last dose prior to sae 31/Jul/2012
     Route: 042
     Dates: start: 20120620
  4. EPIRUBICIN [Suspect]
     Indication: GASTRIC CANCER
     Dosage: last dose prior to sae 31/Jul/2012
     Route: 042
     Dates: start: 20120620
  5. PERINDOPRIL [Concomitant]
     Route: 048
     Dates: start: 201206
  6. ATENOLOL [Concomitant]
     Route: 048
     Dates: start: 201206
  7. LANSOPRAZOLE [Concomitant]
     Route: 048
     Dates: start: 201206
  8. ZOMORPH [Concomitant]
     Route: 048
     Dates: start: 201207

REACTIONS (4)
  - Pulmonary embolism [Recovered/Resolved with Sequelae]
  - Chest pain [Recovered/Resolved]
  - Dehydration [Recovered/Resolved]
  - Dysphagia [Recovered/Resolved]
